FAERS Safety Report 10697970 (Version 1)
Quarter: 2015Q1

REPORT INFORMATION
  Report Type: Spontaneous
  Country: FR (occurrence: None)
  Receive Date: 20150106
  Receipt Date: 20150106
  Transmission Date: 20150721
  Serious: Yes (Other)
  Sender: FDA-Public Use
  Company Number: 8003838

PATIENT
  Age: 29 Year
  Sex: Female

DRUGS (3)
  1. LEVOTHYROX (LEVOTHYROXINE SODIUM) (LEVOTHYROXINE SODIUM) [Suspect]
     Active Substance: LEVOTHYROXINE SODIUM
     Indication: HYPOTHYROIDISM
     Dosage: LONG TERM THERAPY (87.5 MG, 1 IN 1D)
  2. ASPEGIC [Suspect]
     Active Substance: ASPIRIN DL-LYSINE
     Indication: PRODUCT USED FOR UNKNOWN INDICATION
     Dosage: LOW DOSE, DOSE TAKEN BEFORE 15 WEEKS AMENORRHOEA PLUS 6 DAYS
  3. UTROGESTAN [Suspect]
     Active Substance: PROGESTERONE
     Indication: PRODUCT USED FOR UNKNOWN INDICATION
     Dosage: TAKEN BEFORE PREGNANCY AND BEFORE 15 WEEKS OF AMENORRHOEA PLUS 1 DAY?

REACTIONS (3)
  - Maternal exposure during pregnancy [None]
  - Beta haemolytic streptococcal infection [None]
  - Carbohydrate intolerance [None]

NARRATIVE: CASE EVENT DATE: 20100709
